FAERS Safety Report 12675685 (Version 1)
Quarter: 2016Q3

REPORT INFORMATION
  Report Type: Spontaneous
  Country: US (occurrence: US)
  Receive Date: 20160823
  Receipt Date: 20160823
  Transmission Date: 20161109
  Serious: No
  Sender: FDA-Public Use
  Company Number: US-JAZZ-2016-US-006615

PATIENT
  Sex: Female

DRUGS (39)
  1. VAGIFEM [Concomitant]
     Active Substance: ESTRADIOL
  2. PRISTIQ EXTENDED-RELEASE [Concomitant]
     Active Substance: DESVENLAFAXINE SUCCINATE
  3. XYREM [Suspect]
     Active Substance: SODIUM OXYBATE
     Dosage: 3.75 G, BID
     Route: 048
     Dates: start: 201303
  4. ESTRADIOL. [Concomitant]
     Active Substance: ESTRADIOL
  5. VENLAFAXINE HCL [Concomitant]
     Active Substance: VENLAFAXINE HYDROCHLORIDE
  6. NUVIGIL [Concomitant]
     Active Substance: ARMODAFINIL
  7. TESTOSTERONE. [Concomitant]
     Active Substance: TESTOSTERONE
  8. TIZANIDINE HCL [Concomitant]
     Active Substance: TIZANIDINE HYDROCHLORIDE
  9. DICYCLOMINE [Concomitant]
     Active Substance: DICYCLOMINE HYDROCHLORIDE
  10. ADDERALL [Concomitant]
     Active Substance: AMPHETAMINE ASPARTATE\AMPHETAMINE SULFATE\DEXTROAMPHETAMINE SACCHARATE\DEXTROAMPHETAMINE SULFATE
  11. VITAMIN D [Concomitant]
     Active Substance: CHOLECALCIFEROL
  12. ATENOLOL. [Concomitant]
     Active Substance: ATENOLOL
  13. DHEA [Concomitant]
     Active Substance: PRASTERONE
  14. TOPAMAX [Concomitant]
     Active Substance: TOPIRAMATE
  15. XYREM [Suspect]
     Active Substance: SODIUM OXYBATE
     Dosage: 3.75 G, BID
     Route: 048
     Dates: start: 201408
  16. HUMIRA [Concomitant]
     Active Substance: ADALIMUMAB
  17. LORAZEPAM. [Concomitant]
     Active Substance: LORAZEPAM
  18. PREDNISONE. [Concomitant]
     Active Substance: PREDNISONE
  19. ROBAXIN [Concomitant]
     Active Substance: METHOCARBAMOL
  20. CELEBREX [Concomitant]
     Active Substance: CELECOXIB
  21. TRAMADOL HCL [Concomitant]
     Active Substance: TRAMADOL HYDROCHLORIDE
  22. XYREM [Suspect]
     Active Substance: SODIUM OXYBATE
     Indication: NARCOLEPSY
     Dosage: 2.25 G, BID
     Route: 048
     Dates: start: 201302, end: 201303
  23. VISTARIL [Concomitant]
     Active Substance: HYDROXYZINE PAMOATE
  24. HYDROXYZINE HCL [Concomitant]
     Active Substance: HYDROXYZINE HYDROCHLORIDE
  25. MELATONIN [Concomitant]
     Active Substance: MELATONIN
  26. PROGESTERONE. [Concomitant]
     Active Substance: PROGESTERONE
  27. CALCIUM ANTACID [Concomitant]
     Active Substance: CALCIUM CARBONATE
  28. XYREM [Suspect]
     Active Substance: SODIUM OXYBATE
     Dosage: 3 G, BID
     Route: 048
     Dates: start: 201303, end: 201303
  29. XYREM [Suspect]
     Active Substance: SODIUM OXYBATE
     Dosage: 2.75 G, BID
     Route: 048
     Dates: start: 201406, end: 201408
  30. POTASSIUM CL [Concomitant]
     Active Substance: POTASSIUM CHLORIDE
  31. CLONAZEPAM. [Concomitant]
     Active Substance: CLONAZEPAM
  32. VALACYCLOVIR HCL [Concomitant]
     Active Substance: VALACYCLOVIR HYDROCHLORIDE
  33. NORCO [Concomitant]
     Active Substance: ACETAMINOPHEN\HYDROCODONE BITARTRATE
  34. LYRICA [Concomitant]
     Active Substance: PREGABALIN
  35. VITAMIN B12 [Concomitant]
     Active Substance: CYANOCOBALAMIN
  36. LANSOPRAZOLE. [Concomitant]
     Active Substance: LANSOPRAZOLE
  37. IBUPROFEN. [Concomitant]
     Active Substance: IBUPROFEN
  38. LAMOTRIGINE. [Concomitant]
     Active Substance: LAMOTRIGINE
  39. LEVSIN [Concomitant]
     Active Substance: HYOSCYAMINE SULFATE

REACTIONS (5)
  - Feeling hot [Unknown]
  - Anxiety [Unknown]
  - Ear infection [Unknown]
  - Dizziness [Unknown]
  - Unevaluable event [Unknown]
